FAERS Safety Report 20173049 (Version 1)
Quarter: 2021Q4

REPORT INFORMATION
  Report Type: Report from Study
  Country: DE (occurrence: DE)
  Receive Date: 20211211
  Receipt Date: 20211211
  Transmission Date: 20220303
  Serious: Yes (Hospitalization)
  Sender: FDA-Public Use
  Company Number: DE-NOVARTISPH-NVSC2021DE131519

PATIENT
  Sex: Female

DRUGS (5)
  1. COSENTYX [Suspect]
     Active Substance: SECUKINUMAB
     Indication: Psoriatic arthropathy
     Dosage: 150 MG (UPTITRATION)
     Route: 065
     Dates: start: 20200617
  2. COSENTYX [Suspect]
     Active Substance: SECUKINUMAB
     Dosage: 150 MG, QMO
     Route: 065
  3. COSENTYX [Suspect]
     Active Substance: SECUKINUMAB
     Dosage: 300 MG, QMO
     Route: 065
     Dates: start: 20210323
  4. NAPROXEN [Suspect]
     Active Substance: NAPROXEN
     Indication: Psoriatic arthropathy
     Dosage: 250 UNK
     Route: 065
     Dates: start: 20201007, end: 20210223
  5. NAPROXEN [Suspect]
     Active Substance: NAPROXEN
     Dosage: 500 MG 7QD (7 DAYS PER WEEK)
     Route: 065
     Dates: start: 20210112

REACTIONS (3)
  - Parotid abscess [Unknown]
  - Sciatica [Unknown]
  - Alopecia [Unknown]

NARRATIVE: CASE EVENT DATE: 20200915
